FAERS Safety Report 6691335-0 (Version None)
Quarter: 2010Q2

REPORT INFORMATION
  Report Type: 
  Country: None (occurrence: None)
  Receive Date: 20100422
  Receipt Date: 20100409
  Transmission Date: 20101027
  Serious: No
  Sender: FDA-Public Use
  Company Number: US-JNJFOC-20100404424

PATIENT
  Sex: Female
  Weight: 65.77 kg

DRUGS (11)
  1. DURAGESIC-100 [Suspect]
     Indication: INTERVERTEBRAL DISC DISORDER
     Route: 062
  2. DURAGESIC-100 [Suspect]
     Indication: ARTHRITIS
     Route: 062
  3. OXYCODONE [Concomitant]
     Indication: BREAKTHROUGH PAIN
     Route: 048
  4. IBUPROFEN [Concomitant]
     Indication: ARTHRITIS
     Dosage: 800MG TABLET, 200MG DAILY.
     Route: 048
  5. PRILOSEC [Concomitant]
     Indication: GASTROOESOPHAGEAL REFLUX DISEASE
     Route: 048
  6. XANAX [Concomitant]
     Indication: SLEEP DISORDER THERAPY
     Route: 048
  7. FLOVENT [Concomitant]
     Indication: ASTHMA
     Route: 055
  8. ALBUTEROL [Concomitant]
     Indication: ASTHMA
     Route: 055
  9. TYLENOL-500 [Concomitant]
     Indication: INTERVERTEBRAL DISC DISORDER
  10. TYLENOL-500 [Concomitant]
     Indication: ARTHRITIS
  11. SEREVENT [Concomitant]
     Indication: ASTHMA
     Route: 055

REACTIONS (1)
  - WRONG TECHNIQUE IN DRUG USAGE PROCESS [None]
